FAERS Safety Report 6040446-1 (Version None)
Quarter: 2009Q1

REPORT INFORMATION
  Report Type: 
  Country: None (occurrence: None)
  Receive Date: 20090116
  Receipt Date: 20080428
  Transmission Date: 20090719
  Serious: No
  Sender: FDA-Public Use
  Company Number: US-BRISTOL-MYERS SQUIBB COMPANY-14109490

PATIENT
  Age: 50 Year
  Sex: Male

DRUGS (12)
  1. ABILIFY [Suspect]
     Indication: BIPOLAR DISORDER
     Route: 048
     Dates: start: 20070129, end: 20080103
  2. SEROQUEL [Suspect]
     Dates: start: 20060101
  3. PAXIL [Concomitant]
     Route: 048
  4. LUNESTA [Concomitant]
     Route: 048
  5. METFORMIN [Concomitant]
     Route: 048
  6. INSULIN [Concomitant]
  7. NEXIUM [Concomitant]
  8. ACEON [Concomitant]
  9. HYDROCHLOROTHIAZIDE [Concomitant]
  10. CARDIZEM [Concomitant]
  11. FLEXERIL [Concomitant]
  12. ASPIRIN [Concomitant]

REACTIONS (1)
  - TARDIVE DYSKINESIA [None]
